FAERS Safety Report 13539208 (Version 1)
Quarter: 2017Q2

REPORT INFORMATION
  Report Type: Spontaneous
  Country: CA (occurrence: CA)
  Receive Date: 20170512
  Receipt Date: 20170512
  Transmission Date: 20170830
  Serious: Yes (Disabling)
  Sender: FDA-Public Use
  Company Number: CA-TEVA-764036ACC

PATIENT
  Age: 47 Year
  Sex: Male
  Weight: 80.3 kg

DRUGS (2)
  1. TEVA-CIPROFLOXACIN [Suspect]
     Active Substance: CIPROFLOXACIN
     Indication: EPIDIDYMITIS
     Dosage: 1000 MILLIGRAM DAILY; TOTAL OF 6 DOSES
     Route: 048
     Dates: start: 20170329, end: 20170402
  2. ADVIL [Concomitant]
     Active Substance: IBUPROFEN

REACTIONS (23)
  - Burning sensation [Unknown]
  - Arthralgia [Recovering/Resolving]
  - Nausea [Recovered/Resolved]
  - Pain [Recovering/Resolving]
  - Musculoskeletal pain [Recovering/Resolving]
  - Tendon pain [Recovering/Resolving]
  - Feeling cold [Unknown]
  - Tendon discomfort [Unknown]
  - Pain [Recovering/Resolving]
  - Abasia [Not Recovered/Not Resolved]
  - Pain [Unknown]
  - Headache [Recovered/Resolved]
  - Tendon discomfort [Not Recovered/Not Resolved]
  - Pain in extremity [Recovering/Resolving]
  - Myalgia [Recovering/Resolving]
  - Muscle tightness [Not Recovered/Not Resolved]
  - Asthenia [Not Recovered/Not Resolved]
  - Swelling [Unknown]
  - Arthralgia [Not Recovered/Not Resolved]
  - Joint stiffness [Unknown]
  - Inflammation [Not Recovered/Not Resolved]
  - Joint stiffness [Not Recovered/Not Resolved]
  - Pain [Not Recovered/Not Resolved]

NARRATIVE: CASE EVENT DATE: 201703
